FAERS Safety Report 9411029 (Version 1)
Quarter: 2013Q3

REPORT INFORMATION
  Report Type: Spontaneous
  Country: US (occurrence: US)
  Receive Date: 20130719
  Receipt Date: 20130719
  Transmission Date: 20140515
  Serious: No
  Sender: FDA-Public Use
  Company Number: US-TEVA-417598USA

PATIENT
  Age: 86 Year
  Sex: Female

DRUGS (2)
  1. PROVIGIL [Suspect]
     Route: 048
  2. PERCOCET [Concomitant]
     Indication: BACK PAIN
     Dosage: 1.5 TABLETS PER DAY
     Route: 048

REACTIONS (4)
  - Drug effect decreased [Recovering/Resolving]
  - Off label use [Not Recovered/Not Resolved]
  - Dizziness [Unknown]
  - Incorrect dose administered [Unknown]
